FAERS Safety Report 9520699 (Version 1)
Quarter: 2013Q3

REPORT INFORMATION
  Report Type: Spontaneous
  Country: US (occurrence: US)
  Receive Date: 20130913
  Receipt Date: 20130913
  Transmission Date: 20140515
  Serious: Yes (Life-Threatening, Hospitalization)
  Sender: FDA-Public Use
  Company Number: US-BRISTOL-MYERS SQUIBB COMPANY-19235100

PATIENT
  Sex: Male
  Weight: 125 kg

DRUGS (2)
  1. ELIQUIS [Suspect]
     Indication: ATRIAL FIBRILLATION
     Dosage: LAST DOSE ON 10AUG13
  2. ASPIRIN [Suspect]

REACTIONS (2)
  - Multi-organ failure [Unknown]
  - Haemorrhage [Unknown]
